FAERS Safety Report 8008762-1 (Version None)
Quarter: 2011Q4

REPORT INFORMATION
  Report Type: 
  Country: None (occurrence: None)
  Receive Date: 20111227
  Receipt Date: 20111216
  Transmission Date: 20120403
  Serious: Yes (Hospitalization)
  Sender: FDA-Public Use
  Company Number: JP-ASTRAZENECA-2011SE70048

PATIENT
  Age: 12788 Day
  Sex: Male
  Weight: 86 kg

DRUGS (2)
  1. UROLEAP [Suspect]
     Indication: HYPERURICAEMIA
     Route: 048
     Dates: start: 20111111, end: 20111111
  2. CRESTOR [Suspect]
     Indication: HYPERLIPIDAEMIA
     Route: 048
     Dates: start: 20111110, end: 20111111

REACTIONS (2)
  - RENAL FAILURE ACUTE [None]
  - LIVER FUNCTION TEST ABNORMAL [None]
